FAERS Safety Report 8952312 (Version 2)
Quarter: 2012Q4

REPORT INFORMATION
  Report Type: 
  Country: US (occurrence: US)
  Receive Date: 20121205
  Receipt Date: 20121231
  Transmission Date: 20130627
  Serious: Yes (Hospitalization, Other)
  Sender: FDA-Public Use
  Company Number: US-BAYER-2012-126047

PATIENT
  Age: 39 Year
  Sex: Female

DRUGS (1)
  1. BETASERON [Suspect]
     Indication: MULTIPLE SCLEROSIS
     Dosage: 0.3 mg, QOD
     Route: 058
     Dates: start: 200712

REACTIONS (4)
  - Multiple sclerosis relapse [None]
  - Headache [Not Recovered/Not Resolved]
  - Drug dose omission [None]
  - Multiple sclerosis relapse [None]
